FAERS Safety Report 7831973-2 (Version None)
Quarter: 2011Q4

REPORT INFORMATION
  Report Type: 
  Country: None (occurrence: None)
  Receive Date: 20111021
  Receipt Date: 20111012
  Transmission Date: 20120403
  Serious: Yes (Other)
  Sender: FDA-Public Use
  Company Number: CA-ROCHE-GNE282988

PATIENT
  Sex: Male
  Weight: 67.072 kg

DRUGS (3)
  1. XOLAIR [Suspect]
     Indication: ASTHMA
     Dosage: 300 MG, 1/MONTH
     Route: 058
     Dates: start: 20061211
  2. XOLAIR [Suspect]
     Route: 058
     Dates: start: 20110303
  3. PREDNISONE TAB [Concomitant]
     Indication: PRODUCT USED FOR UNKNOWN INDICATION

REACTIONS (12)
  - SYSTEMIC LUPUS ERYTHEMATOSUS [None]
  - ARTHRITIS INFECTIVE [None]
  - OBSTRUCTIVE AIRWAYS DISORDER [None]
  - INFLUENZA [None]
  - URINARY TRACT INFECTION [None]
  - BRONCHITIS [None]
  - NASOPHARYNGITIS [None]
  - LOWER RESPIRATORY TRACT INFECTION [None]
  - ASTHMA [None]
  - PRODUCTIVE COUGH [None]
  - VOMITING [None]
  - HYPERTENSION [None]
